FAERS Safety Report 12375112 (Version 1)
Quarter: 2016Q2

REPORT INFORMATION
  Report Type: Spontaneous
  Country: US (occurrence: None)
  Receive Date: 20160516
  Receipt Date: 20160516
  Transmission Date: 20160815
  Serious: Yes (Life-Threatening, Hospitalization, Disabling)
  Sender: FDA-Public Use
  Company Number: None

PATIENT
  Age: 57 Year
  Sex: Male
  Weight: 74.84 kg

DRUGS (4)
  1. PYCNOGENOL [Concomitant]
     Active Substance: DIETARY SUPPLEMENT
  2. TURMERIC/GINGER [Concomitant]
  3. PROBIOTICS [Concomitant]
     Active Substance: PROBIOTICS NOS
  4. CIPROFLOXACIN. [Suspect]
     Active Substance: CIPROFLOXACIN
     Indication: GASTROINTESTINAL DISORDER
     Route: 048
     Dates: start: 20140114, end: 20150630

REACTIONS (21)
  - Back pain [None]
  - Diarrhoea [None]
  - Disturbance in attention [None]
  - Diverticulitis [None]
  - Tendon pain [None]
  - Testicular pain [None]
  - Weight decreased [None]
  - Impaired self-care [None]
  - Feeling abnormal [None]
  - Diverticulum [None]
  - Abdominal pain [None]
  - Amnesia [None]
  - Apathy [None]
  - Tinnitus [None]
  - Quality of life decreased [None]
  - Connective tissue disorder [None]
  - Sexual dysfunction [None]
  - Neck pain [None]
  - Psychotic disorder [None]
  - Visual impairment [None]
  - Impaired work ability [None]

NARRATIVE: CASE EVENT DATE: 20140808
